FAERS Safety Report 8094159-5 (Version None)
Quarter: 2012Q1

REPORT INFORMATION
  Report Type: 
  Country: None (occurrence: None)
  Receive Date: 20120130
  Receipt Date: 20120130
  Transmission Date: 20120608
  Serious: No
  Sender: FDA-Public Use
  Company Number: None

PATIENT
  Age: 53 Year
  Sex: Male
  Weight: 120.2 kg

DRUGS (1)
  1. LOVASTATIN [Suspect]

REACTIONS (5)
  - HYPOAESTHESIA [None]
  - SENSORY LOSS [None]
  - MUSCLE DISORDER [None]
  - BURNING SENSATION [None]
  - RENAL FAILURE [None]
